FAERS Safety Report 8019364-5 (Version None)
Quarter: 2012Q1

REPORT INFORMATION
  Report Type: 
  Country: None (occurrence: None)
  Receive Date: 20120103
  Receipt Date: 20111220
  Transmission Date: 20120608
  Serious: Yes (Other)
  Sender: FDA-Public Use
  Company Number: PHFR2011GB006374

PATIENT
  Sex: Male

DRUGS (2)
  1. OLANZAPINE [Concomitant]
  2. CLOZARIL [Suspect]
     Indication: SCHIZOPHRENIA
     Route: 048
     Dates: start: 19950525, end: 20111104

REACTIONS (10)
  - MANIA [None]
  - ASTHENIA [None]
  - WHITE BLOOD CELL COUNT DECREASED [None]
  - VEIN DISORDER [None]
  - SOMNOLENCE [None]
  - LOGORRHOEA [None]
  - AGITATION [None]
  - NEUTROPENIA [None]
  - PLATELET COUNT DECREASED [None]
  - EOSINOPHIL COUNT DECREASED [None]
